FAERS Safety Report 13928180 (Version 1)
Quarter: 2017Q3

REPORT INFORMATION
  Report Type: Spontaneous
  Country: US (occurrence: None)
  Receive Date: 20170831
  Receipt Date: 20170831
  Transmission Date: 20171127
  Serious: Yes (Hospitalization)
  Sender: FDA-Public Use
  Company Number: None

PATIENT
  Age: 64 Year
  Sex: Female

DRUGS (24)
  1. VITAMIN D [Concomitant]
     Active Substance: CHOLECALCIFEROL
  2. PREDNISONE. [Concomitant]
     Active Substance: PREDNISONE
  3. DOCQLACE [Concomitant]
     Active Substance: DOCUSATE SODIUM
  4. FOLIC ACID. [Concomitant]
     Active Substance: FOLIC ACID
  5. FUROSEMIDE. [Concomitant]
     Active Substance: FUROSEMIDE
  6. METHOTREXATE. [Concomitant]
     Active Substance: METHOTREXATE
  7. PERCOCET [Concomitant]
     Active Substance: ACETAMINOPHEN\OXYCODONE HYDROCHLORIDE
  8. CYCLOBENZAPR [Concomitant]
     Active Substance: CYCLOBENZAPRINE
  9. LOSARTAN. [Concomitant]
     Active Substance: LOSARTAN
  10. PRILOSEC [Concomitant]
     Active Substance: OMEPRAZOLE MAGNESIUM
  11. CALCIUM [Concomitant]
     Active Substance: CALCIUM
  12. ZOLOFT [Concomitant]
     Active Substance: SERTRALINE HYDROCHLORIDE
  13. VENTOLIN [Concomitant]
     Active Substance: ALBUTEROL SULFATE
  14. GABAPENTIN. [Concomitant]
     Active Substance: GABAPENTIN
  15. XELJANZ [Suspect]
     Active Substance: TOFACITINIB CITRATE
     Indication: RHEUMATOID ARTHRITIS
     Route: 048
     Dates: start: 20170627
  16. HYDROCHLOROT [Concomitant]
     Active Substance: HYDROCHLOROTHIAZIDE
  17. LANTUS [Concomitant]
     Active Substance: INSULIN GLARGINE
  18. TRIAMCIN [Concomitant]
  19. ZOLPIEDAM [Concomitant]
  20. ZOVIRAX [Concomitant]
     Active Substance: ACYCLOVIR
  21. ALBUTEROL. [Concomitant]
     Active Substance: ALBUTEROL
  22. ALENDRONATE [Concomitant]
     Active Substance: ALENDRONATE SODIUM
  23. VOLTAREN [Concomitant]
     Active Substance: DICLOFENAC SODIUM
  24. MECLIZINE [Concomitant]
     Active Substance: MECLIZINE HYDROCHLORIDE

REACTIONS (1)
  - Fall [None]

NARRATIVE: CASE EVENT DATE: 201708
